FAERS Safety Report 22210662 (Version 1)
Quarter: 2023Q2

REPORT INFORMATION
  Report Type: Other
  Country: US (occurrence: None)
  Receive Date: 20230414
  Receipt Date: 20230414
  Transmission Date: 20230721
  Serious: Yes (Other)
  Sender: FDA-Public Use
  Company Number: US-ROCHE-2019644

PATIENT
  Age: 69 Year
  Sex: Male

DRUGS (5)
  1. CELLCEPT [Suspect]
     Active Substance: MYCOPHENOLATE MOFETIL
     Indication: Proteinuria
     Route: 048
  2. CELLCEPT [Suspect]
     Active Substance: MYCOPHENOLATE MOFETIL
     Indication: Chronic kidney disease
     Dosage: 600 MG TAB BID 90 DAYS, 3 TIMES REFILL
     Route: 048
  3. CELLCEPT [Suspect]
     Active Substance: MYCOPHENOLATE MOFETIL
     Indication: Nephrosclerosis
     Dosage: 1 TAB BID
     Route: 048
  4. CELLCEPT [Suspect]
     Active Substance: MYCOPHENOLATE MOFETIL
     Indication: Nephritic syndrome
     Dosage: BID
     Route: 048
  5. CELLCEPT [Suspect]
     Active Substance: MYCOPHENOLATE MOFETIL
     Indication: Glomerulonephropathy

REACTIONS (8)
  - Lung carcinoma cell type unspecified stage I [Unknown]
  - Off label use [Unknown]
  - Depressed mood [Unknown]
  - Morbid thoughts [Unknown]
  - Aneurysm [Unknown]
  - Malaise [Unknown]
  - Malaise [Unknown]
  - Malaise [Unknown]
